FAERS Safety Report 22359584 (Version 1)
Quarter: 2023Q2

REPORT INFORMATION
  Report Type: Report from Study
  Country: CA (occurrence: CA)
  Receive Date: 20230524
  Receipt Date: 20230524
  Transmission Date: 20230722
  Serious: Yes (Other)
  Sender: FDA-Public Use
  Company Number: CA-CELLTRION INC.-2023CA010757

PATIENT

DRUGS (1)
  1. TRUXIMA [Suspect]
     Active Substance: RITUXIMAB-ABBS
     Indication: Immune thrombocytopenia
     Dosage: 375 MG/M2, 1/WEEK/375MG/M2 X 4 DOSES/4X 500MG VIAL + 12 X 100MG VIALS = 3200MG/ 800MG IV X 4 DOSES
     Route: 042

REACTIONS (2)
  - Immune thrombocytopenia [Unknown]
  - Off label use [Unknown]
